FAERS Safety Report 10691330 (Version 2)
Quarter: 2015Q1

REPORT INFORMATION
  Report Type: Report from Study
  Country: CN (occurrence: CN)
  Receive Date: 20150105
  Receipt Date: 20150112
  Transmission Date: 20150720
  Serious: Yes (Death, Other)
  Sender: FDA-Public Use
  Company Number: PHHY2015CN000533

PATIENT
  Sex: Male

DRUGS (1)
  1. GLIVEC [Suspect]
     Active Substance: IMATINIB MESYLATE
     Indication: CHRONIC MYELOID LEUKAEMIA
     Dosage: UNK
     Route: 065

REACTIONS (6)
  - Pneumonia fungal [Unknown]
  - Leukaemic infiltration extramedullary [Unknown]
  - Bone marrow failure [Unknown]
  - Platelet count decreased [Fatal]
  - Blast crisis in myelogenous leukaemia [Unknown]
  - Gastrointestinal haemorrhage [Fatal]
